FAERS Safety Report 19794854 (Version 4)
Quarter: 2022Q1

REPORT INFORMATION
  Report Type: Report from Study
  Country: US (occurrence: US)
  Receive Date: 20210906
  Receipt Date: 20220201
  Transmission Date: 20220424
  Serious: Yes (Hospitalization)
  Sender: FDA-Public Use
  Company Number: US-TEVA-2021-US-1948811

PATIENT
  Age: 5 Year
  Sex: Male
  Weight: 24.1 kg

DRUGS (11)
  1. VINCRISTINE [Suspect]
     Active Substance: VINCRISTINE
     Indication: Acute lymphocytic leukaemia
     Dosage: ONCE
     Route: 042
     Dates: start: 20210729
  2. VINCRISTINE [Suspect]
     Active Substance: VINCRISTINE
     Route: 042
     Dates: start: 20210826
  3. PREDNISONE [Suspect]
     Active Substance: PREDNISONE
     Indication: Acute lymphocytic leukaemia
     Route: 048
     Dates: start: 20210729
  4. PREDNISONE [Suspect]
     Active Substance: PREDNISONE
     Route: 048
     Dates: start: 20210729
  5. PREDNISONE [Suspect]
     Active Substance: PREDNISONE
     Route: 048
     Dates: start: 20210826
  6. METHOTREXATE [Suspect]
     Active Substance: METHOTREXATE
     Indication: Acute lymphocytic leukaemia
     Dosage: ONCE
     Route: 037
     Dates: start: 20210729
  7. METHOTREXATE [Suspect]
     Active Substance: METHOTREXATE
     Indication: Acute lymphocytic leukaemia
     Dosage: M2 WEEKLY
     Route: 048
     Dates: start: 20210513, end: 20210729
  8. MERCAPTOPURINE [Suspect]
     Active Substance: MERCAPTOPURINE
     Indication: Acute lymphocytic leukaemia
     Route: 048
     Dates: start: 20210506, end: 20210729
  9. RUXOLITINIB [Suspect]
     Active Substance: RUXOLITINIB
     Indication: Acute lymphocytic leukaemia
     Dosage: 80 MILLIGRAM DAILY; 1-14,29-42, 57-70
     Route: 048
     Dates: start: 20210506, end: 20210729
  10. RUXOLITINIB [Suspect]
     Active Substance: RUXOLITINIB
     Route: 065
     Dates: start: 20210921
  11. CIMETIDINE [Concomitant]
     Active Substance: CIMETIDINE
     Dates: start: 20210409, end: 20210707

REACTIONS (2)
  - Cellulitis [Recovered/Resolved]
  - Febrile neutropenia [Recovered/Resolved]

NARRATIVE: CASE EVENT DATE: 20210816
